FAERS Safety Report 8060961-9 (Version None)
Quarter: 2012Q1

REPORT INFORMATION
  Report Type: 
  Country: None (occurrence: None)
  Receive Date: 20120120
  Receipt Date: 20120110
  Transmission Date: 20120608
  Serious: Yes (Other)
  Sender: FDA-Public Use
  Company Number: US-RB-036352-12

PATIENT
  Age: 52 Year
  Sex: Female

DRUGS (3)
  1. VYVANSE [Concomitant]
     Dosage: USING SEVERAL TIMES A DAY
     Route: 055
  2. SUBOXONE [Suspect]
     Indication: PRODUCT USED FOR UNKNOWN INDICATION
     Dosage: UNKNOWN DOSAGE DETAILS
     Route: 065
  3. VYVANSE [Suspect]
     Indication: PRODUCT USED FOR UNKNOWN INDICATION
     Dosage: UNKNOWN DOSAGE DETAILS
     Route: 065

REACTIONS (10)
  - ASTHENIA [None]
  - HALLUCINATION [None]
  - CONSTIPATION [None]
  - FEELING ABNORMAL [None]
  - OEDEMA PERIPHERAL [None]
  - PERIORBITAL OEDEMA [None]
  - ASTHMA [None]
  - SOMNOLENCE [None]
  - DYSPNOEA [None]
  - DISTURBANCE IN ATTENTION [None]
